FAERS Safety Report 11590559 (Version 1)
Quarter: 2015Q4

REPORT INFORMATION
  Report Type: Spontaneous
  Country: US (occurrence: US)
  Receive Date: 20151002
  Receipt Date: 20151002
  Transmission Date: 20160304
  Serious: No
  Sender: FDA-Public Use
  Company Number: US-GLAXOSMITHKLINE-US2015139873

PATIENT
  Age: 52 Year
  Sex: Female

DRUGS (11)
  1. VITAMIN D [Concomitant]
     Active Substance: CHOLECALCIFEROL
  2. MECLIZINE [Concomitant]
     Active Substance: MECLIZINE\MECLIZINE HYDROCHLORIDE
  3. TRAMADOL. [Concomitant]
     Active Substance: TRAMADOL
  4. NEXIUM [Concomitant]
     Active Substance: ESOMEPRAZOLE MAGNESIUM
  5. PHENERGAN [Concomitant]
     Active Substance: PROMETHAZINE HYDROCHLORIDE
  6. CYMBALTA [Concomitant]
     Active Substance: DULOXETINE HYDROCHLORIDE
  7. PLAQUENIL [Concomitant]
     Active Substance: HYDROXYCHLOROQUINE SULFATE
  8. FOLIC ACID. [Concomitant]
     Active Substance: FOLIC ACID
  9. RAYOS [Concomitant]
     Active Substance: PREDNISONE
  10. BENLYSTA [Suspect]
     Active Substance: BELIMUMAB
     Indication: SYSTEMIC LUPUS ERYTHEMATOSUS
     Dosage: UNK
     Route: 041
     Dates: start: 20150923
  11. METHOTREXATE [Concomitant]
     Active Substance: METHOTREXATE

REACTIONS (5)
  - Dyspnoea [Recovering/Resolving]
  - Pyrexia [Recovered/Resolved]
  - Insomnia [Not Recovered/Not Resolved]
  - Migraine [Recovering/Resolving]
  - Nausea [Not Recovered/Not Resolved]

NARRATIVE: CASE EVENT DATE: 20150923
